FAERS Safety Report 21644791 (Version 1)
Quarter: 2022Q4

REPORT INFORMATION
  Report Type: Spontaneous
  Country: US (occurrence: US)
  Receive Date: 20221125
  Receipt Date: 20221125
  Transmission Date: 20230112
  Serious: Yes (Other)
  Sender: FDA-Public Use
  Company Number: US-ALNYLAM PHARMACEUTICALS, INC.-ALN-2022-004273

PATIENT

DRUGS (1)
  1. GIVLAARI [Suspect]
     Active Substance: GIVOSIRAN SODIUM
     Indication: Porphyria acute
     Dosage: UNK, MONTHLY
     Route: 065
     Dates: start: 202107

REACTIONS (11)
  - Porphyria acute [Not Recovered/Not Resolved]
  - Presyncope [Unknown]
  - Mobility decreased [Unknown]
  - Hot flush [Unknown]
  - Fear of injection [Unknown]
  - Discomfort [Unknown]
  - Drug ineffective [Unknown]
  - Infusion site bruising [Unknown]
  - Injection site discolouration [Unknown]
  - Injury associated with device [Unknown]
  - Affect lability [Unknown]

NARRATIVE: CASE EVENT DATE: 20221101
